FAERS Safety Report 8268758-1 (Version None)
Quarter: 2012Q2

REPORT INFORMATION
  Report Type: 
  Country: None (occurrence: None)
  Receive Date: 20120409
  Receipt Date: 20120409
  Transmission Date: 20120825
  Serious: No
  Sender: FDA-Public Use
  Company Number: None

PATIENT
  Age: 41 Year
  Sex: Female
  Weight: 141 kg

DRUGS (4)
  1. GENTAMICIN [Suspect]
     Indication: ENDOCARDITIS
  2. TENOFOVIR [Concomitant]
  3. LISINOPRIL [Concomitant]
     Route: 048
  4. BUMETANIDE [Concomitant]

REACTIONS (2)
  - ACUTE PRERENAL FAILURE [None]
  - DIALYSIS [None]
